FAERS Safety Report 25504516 (Version 1)
Quarter: 2025Q3

REPORT INFORMATION
  Report Type: Spontaneous
  Country: GB (occurrence: GB)
  Receive Date: 20250702
  Receipt Date: 20250702
  Transmission Date: 20251021
  Serious: Yes (Hospitalization, Other)
  Sender: PFIZER
  Company Number: None

PATIENT
  Age: 86 Year
  Sex: Male

DRUGS (21)
  1. FLUOROURACIL [Suspect]
     Active Substance: FLUOROURACIL
     Indication: Colorectal cancer
  2. FLUOROURACIL [Suspect]
     Active Substance: FLUOROURACIL
  3. IRINOTECAN HYDROCHLORIDE [Suspect]
     Active Substance: IRINOTECAN HYDROCHLORIDE
     Indication: Colorectal cancer
  4. LEUCOVORIN [Suspect]
     Active Substance: LEUCOVORIN\LEUCOVORIN CALCIUM
     Indication: Colorectal cancer
  5. PANITUMUMAB [Suspect]
     Active Substance: PANITUMUMAB
     Indication: Colorectal cancer
  6. DEXAMETHASONE [Concomitant]
     Active Substance: DEXAMETHASONE
  7. ONDANSETRON [Concomitant]
     Active Substance: ONDANSETRON
  8. ATROPINE [Concomitant]
     Active Substance: ATROPINE
  9. LEVOLEUCOVORIN [Concomitant]
     Active Substance: LEVOLEUCOVORIN
  10. CIPROFLOXACIN [Concomitant]
     Active Substance: CIPROFLOXACIN
  11. METOCLOPRAMIDE [Concomitant]
     Active Substance: METOCLOPRAMIDE
  12. ASPIRIN [Concomitant]
     Active Substance: ASPIRIN
  13. CARBOCYSTEINE [Concomitant]
     Active Substance: CARBOCYSTEINE
  14. LOPERAMIDE [Concomitant]
     Active Substance: LOPERAMIDE
  15. OMEPRAZOLE [Concomitant]
     Active Substance: OMEPRAZOLE
  16. MORPHINE [Concomitant]
     Active Substance: MORPHINE
  17. ACETAMINOPHEN [Concomitant]
     Active Substance: ACETAMINOPHEN
  18. RAMIPRIL [Concomitant]
     Active Substance: RAMIPRIL
  19. SENNOSIDES A AND B [Concomitant]
     Active Substance: SENNOSIDES A AND B
  20. VITAMIN B COMPLEX [Concomitant]
     Active Substance: CYANOCOBALAMIN\DEXPANTHENOL\NIACINAMIDE\PYRIDOXINE HYDROCHLORIDE\RIBOFLAVIN 5^-PHOSPHATE SODIUM\THIA
  21. DOXYCYCLINE [Concomitant]
     Active Substance: DOXYCYCLINE

REACTIONS (2)
  - Pulmonary fibrosis [Recovering/Resolving]
  - Pneumonitis [Unknown]

NARRATIVE: CASE EVENT DATE: 20241201
